FAERS Safety Report 5374571-5 (Version None)
Quarter: 2007Q2

REPORT INFORMATION
  Report Type: 
  Country: None (occurrence: None)
  Receive Date: 20070625
  Receipt Date: 20061103
  Transmission Date: 20071010
  Serious: Yes (Hospitalization)
  Sender: FDA-Public Use
  Company Number: SU-2006-005602

PATIENT
  Sex: Female

DRUGS (2)
  1. BENICAR [Suspect]
     Indication: DRUG USE FOR UNKNOWN INDICATION
     Dosage: MG (MG,), PER ORAL
     Route: 048
  2. MACROBID (NITROFURANTOIN) (UNKNOWN) (NITROFURANTOIN) [Concomitant]

REACTIONS (2)
  - RASH [None]
  - URTICARIA [None]
